FAERS Safety Report 5016614-4 (Version None)
Quarter: 2006Q2

REPORT INFORMATION
  Report Type: 
  Country: None (occurrence: None)
  Receive Date: 20060602
  Receipt Date: 20060504
  Transmission Date: 20061013
  Serious: Yes (Death)
  Sender: FDA-Public Use
  Company Number: JP-GLAXOSMITHKLINE-B0423480A

PATIENT
  Age: 65 Year
  Sex: Male

DRUGS (5)
  1. MELPHALAN [Suspect]
     Indication: CORD BLOOD TRANSPLANT THERAPY
     Dosage: 80MGM2 CYCLIC
     Route: 065
     Dates: start: 20030801
  2. FLUDARABINE [Suspect]
     Indication: CORD BLOOD TRANSPLANT THERAPY
     Dosage: 150MGM2 CYCLIC
     Route: 065
     Dates: start: 20030801
  3. TOTAL BODY IRRADIATION [Suspect]
     Indication: CORD BLOOD TRANSPLANT THERAPY
     Dosage: 4GY CYCLIC
     Route: 065
     Dates: start: 20030801
  4. CYCLOSPORINE [Concomitant]
     Route: 065
     Dates: start: 20030801
  5. DIURETICS [Concomitant]
     Route: 065
     Dates: start: 20030301

REACTIONS (10)
  - BLOOD UREA INCREASED [None]
  - CARDIAC FAILURE [None]
  - DIARRHOEA [None]
  - DRUG TOXICITY [None]
  - FEBRILE NEUTROPENIA [None]
  - MELAENA [None]
  - MUCOSAL INFLAMMATION [None]
  - MULTI-ORGAN FAILURE [None]
  - TRANSPLANT REJECTION [None]
  - VENOOCCLUSIVE LIVER DISEASE [None]
